FAERS Safety Report 8014756-2 (Version None)
Quarter: 2011Q4

REPORT INFORMATION
  Report Type: 
  Country: None (occurrence: None)
  Receive Date: 20111229
  Receipt Date: 20111201
  Transmission Date: 20120403
  Serious: Yes (Hospitalization)
  Sender: FDA-Public Use
  Company Number: IT-PFIZER INC-K201100501

PATIENT
  Age: 86 Year
  Sex: Female

DRUGS (3)
  1. CAPTOPRIL [Suspect]
     Indication: ESSENTIAL HYPERTENSION
     Dosage: 50MG/25 MG, QD
     Route: 048
     Dates: start: 20101210, end: 20110315
  2. LASIX [Suspect]
     Indication: ESSENTIAL HYPERTENSION
     Dosage: 25 MG, 1X/DAY
     Route: 048
     Dates: start: 20101205, end: 20110315
  3. RAMIPRIL [Suspect]
     Dosage: 10 MG, 1X/DAY
     Route: 048
     Dates: start: 20101008, end: 20110315

REACTIONS (2)
  - CARDIAC FAILURE [None]
  - DYSPNOEA [None]
